FAERS Safety Report 4530569-8 (Version None)
Quarter: 2004Q4

REPORT INFORMATION
  Report Type: 
  Country: None (occurrence: None)
  Receive Date: 20041217
  Receipt Date: 20041217
  Transmission Date: 20050328
  Serious: Yes (Other)
  Sender: FDA-Public Use
  Company Number: None

PATIENT
  Sex: Female
  Weight: 58.9676 kg

DRUGS (2)
  1. ZETIA [Suspect]
     Indication: HYPERCHOLESTEROLAEMIA
     Dosage: 10MG  DAILY ORAL
     Route: 048
     Dates: start: 20040830, end: 20040907
  2. AMLODIPINE [Concomitant]

REACTIONS (9)
  - ARTHROPOD BITE [None]
  - FACE OEDEMA [None]
  - HERPES SIMPLEX [None]
  - MARKEDLY REDUCED DIETARY INTAKE [None]
  - ORAL MUCOSAL BLISTERING [None]
  - PERIORBITAL OEDEMA [None]
  - RASH ERYTHEMATOUS [None]
  - RASH PRURITIC [None]
  - SYPHILIS [None]
